FAERS Safety Report 11030682 (Version 3)
Quarter: 2017Q2

REPORT INFORMATION
  Report Type: Spontaneous
  Country: US (occurrence: US)
  Receive Date: 20150415
  Receipt Date: 20170516
  Transmission Date: 20170829
  Serious: No
  Sender: FDA-Public Use
  Company Number: US-BAYER-2015-134650

PATIENT
  Age: 65 Year
  Sex: Female
  Weight: 135.96 kg

DRUGS (12)
  1. XANAX [Concomitant]
     Active Substance: ALPRAZOLAM
     Dosage: UNK
  2. LEVOTHYROXINE. [Concomitant]
     Active Substance: LEVOTHYROXINE
     Dosage: UNK
  3. CLARITIN REDITABS [Suspect]
     Active Substance: LORATADINE
     Indication: CANCER PAIN
     Dosage: 1 DF, QD
     Route: 048
     Dates: start: 201504
  4. CLARITIN [Suspect]
     Active Substance: LORATADINE
     Indication: BONE PAIN
     Dosage: 2 DF, QD
     Route: 048
  5. FUROSEMIDA [Concomitant]
     Active Substance: FUROSEMIDE
     Dosage: UNK
  6. LANTUS [Concomitant]
     Active Substance: INSULIN GLARGINE
     Dosage: UNK
  7. CLARITIN REDITABS [Suspect]
     Active Substance: LORATADINE
     Indication: PAIN
     Dosage: 2 DF, QD
     Route: 048
     Dates: start: 2016
  8. SYNTHROID [Concomitant]
     Active Substance: LEVOTHYROXINE SODIUM
     Dosage: UNK
  9. AFATINIB [Concomitant]
     Active Substance: AFATINIB
     Dosage: UNK
  10. SIMVASTATIN. [Concomitant]
     Active Substance: SIMVASTATIN
     Dosage: UNK
  11. HUMALOG [INSULIN] [Concomitant]
     Dosage: UNK
  12. POLYPEPTIDE [Concomitant]
     Dosage: UNK

REACTIONS (3)
  - Product use in unapproved indication [Unknown]
  - Incorrect dosage administered [Unknown]
  - Off label use [Unknown]

NARRATIVE: CASE EVENT DATE: 201504
